FAERS Safety Report 23540987 (Version 2)
Quarter: 2024Q2

REPORT INFORMATION
  Report Type: Spontaneous
  Country: US (occurrence: US)
  Receive Date: 20240219
  Receipt Date: 20240517
  Transmission Date: 20240716
  Serious: No
  Sender: FDA-Public Use
  Company Number: US-Stemline Therapeutics, Inc.-2024ST000507

PATIENT
  Age: 83 Year
  Sex: Female

DRUGS (7)
  1. ORSERDU [Suspect]
     Active Substance: ELACESTRANT
     Indication: Product used for unknown indication
     Route: 048
     Dates: start: 202310
  2. ORSERDU [Suspect]
     Active Substance: ELACESTRANT
     Dosage: THREE 86 MG TABLETS DAILY
     Route: 048
     Dates: start: 20240115
  3. ZOFRAN [Concomitant]
     Active Substance: ONDANSETRON HYDROCHLORIDE
     Indication: Product used for unknown indication
  4. TYLENOL [Concomitant]
     Active Substance: ACETAMINOPHEN
     Indication: Product used for unknown indication
  5. LUTEIN [Concomitant]
     Active Substance: LUTEIN
     Indication: Product used for unknown indication
  6. VITAMIN D [Concomitant]
     Active Substance: VITAMIN D NOS
     Indication: Product used for unknown indication
  7. VITAMIN C [Concomitant]
     Active Substance: ASCORBIC ACID
     Indication: Product used for unknown indication

REACTIONS (7)
  - Urticaria [Unknown]
  - Eructation [Unknown]
  - Urinary tract infection [Recovering/Resolving]
  - Anaemia [Not Recovered/Not Resolved]
  - Gastrooesophageal reflux disease [Unknown]
  - Nausea [Not Recovered/Not Resolved]
  - Fatigue [Unknown]
